FAERS Safety Report 18658855 (Version 1)
Quarter: 2020Q4

REPORT INFORMATION
  Report Type: Spontaneous
  Country: AT (occurrence: AT)
  Receive Date: 20201223
  Receipt Date: 20201223
  Transmission Date: 20210114
  Serious: Yes (Other)
  Sender: FDA-Public Use
  Company Number: AT-BAUSCH-BL-2020-036500

PATIENT
  Age: 24 Year
  Sex: Female

DRUGS (3)
  1. SECUKINUMAB. [Concomitant]
     Active Substance: SECUKINUMAB
     Indication: PRODUCT USED FOR UNKNOWN INDICATION
     Route: 065
  2. DICLOFENAC [Suspect]
     Active Substance: DICLOFENAC
     Indication: SPINAL PAIN
     Dosage: PRN (AS NEEDED)
     Route: 065
  3. DICLOFENAC [Suspect]
     Active Substance: DICLOFENAC
     Indication: ARTHRALGIA

REACTIONS (9)
  - Ankylosing spondylitis [Recovered/Resolved]
  - Spinal pain [Unknown]
  - C-reactive protein increased [Recovered/Resolved]
  - Therapeutic product effect incomplete [Unknown]
  - Spinal cord injury lumbar [Unknown]
  - HLA-B*27 positive [Unknown]
  - Red blood cell sedimentation rate increased [Unknown]
  - Axial spondyloarthritis [Unknown]
  - Nail psoriasis [Unknown]
